FAERS Safety Report 11918101 (Version 1)
Quarter: 2016Q1

REPORT INFORMATION
  Report Type: Spontaneous
  Country: US (occurrence: US)
  Receive Date: 20160114
  Receipt Date: 20160114
  Transmission Date: 20160526
  Serious: No
  Sender: FDA-Public Use
  Company Number: US-BIOMARINAP-US-2015-108516

PATIENT
  Sex: Female
  Weight: 90.4 kg

DRUGS (4)
  1. KUVAN [Suspect]
     Active Substance: SAPROPTERIN DIHYDROCHLORIDE
     Indication: PHENYLKETONURIA
     Dosage: 1500 MG, QD
     Route: 048
  2. CALCIUM [Concomitant]
     Active Substance: CALCIUM
     Indication: PRODUCT USED FOR UNKNOWN INDICATION
  3. METAMUCIL                          /00091301/ [Concomitant]
     Indication: CONSTIPATION
     Dosage: UNK
  4. VITAMIN D                          /00107901/ [Concomitant]
     Active Substance: ERGOCALCIFEROL
     Indication: PRODUCT USED FOR UNKNOWN INDICATION

REACTIONS (7)
  - Eye pain [Recovering/Resolving]
  - Constipation [Recovering/Resolving]
  - Kyphosis [Recovering/Resolving]
  - Urinary incontinence [Unknown]
  - Agitation [Unknown]
  - Obesity [Unknown]
  - Ocular hyperaemia [Unknown]
